FAERS Safety Report 21022603 (Version 1)
Quarter: 2022Q2

REPORT INFORMATION
  Report Type: Report from Study
  Country: CA (occurrence: CA)
  Receive Date: 20220629
  Receipt Date: 20220629
  Transmission Date: 20220720
  Serious: Yes (Hospitalization)
  Sender: FDA-Public Use
  Company Number: CA-Merck Healthcare KGaA-9224905

PATIENT
  Age: 61 Year
  Sex: Male
  Weight: 79 kg

DRUGS (4)
  1. FLUOROURACIL [Suspect]
     Active Substance: FLUOROURACIL
     Indication: Oesophageal adenocarcinoma
     Dosage: UNK
  2. AVELUMAB [Suspect]
     Active Substance: AVELUMAB
     Indication: Oesophageal adenocarcinoma
     Dosage: 800 MG
     Route: 042
     Dates: start: 20210204
  3. AVELUMAB [Suspect]
     Active Substance: AVELUMAB
     Dosage: 800 MG
     Route: 042
     Dates: start: 20210218, end: 20210218
  4. DOCETAXEL [Suspect]
     Active Substance: DOCETAXEL
     Indication: Oesophageal adenocarcinoma
     Dosage: UNK

REACTIONS (3)
  - Hepatitis [Recovered/Resolved]
  - Pyrexia [Recovered/Resolved]
  - Acute kidney injury [Recovered/Resolved]

NARRATIVE: CASE EVENT DATE: 20210218
